FAERS Safety Report 20390627 (Version 1)
Quarter: 2022Q1

REPORT INFORMATION
  Report Type: Spontaneous
  Country: US (occurrence: US)
  Receive Date: 20220128
  Receipt Date: 20220128
  Transmission Date: 20220423
  Serious: No
  Sender: FDA-Public Use
  Company Number: US-ALLERGAN-2141319US

PATIENT
  Age: 57 Year
  Sex: Female

DRUGS (1)
  1. BOTOX COSMETIC [Suspect]
     Active Substance: ONABOTULINUMTOXINA
     Indication: Skin wrinkling
     Dosage: 500 UNITS, SINGLE
     Dates: start: 20211129, end: 20211129

REACTIONS (4)
  - Ovarian cyst [Not Recovered/Not Resolved]
  - Off label use [Unknown]
  - Muscle tightness [Unknown]
  - Therapeutic response decreased [Unknown]

NARRATIVE: CASE EVENT DATE: 20210901
